FAERS Safety Report 4354314-4 (Version None)
Quarter: 2004Q2

REPORT INFORMATION
  Report Type: 
  Country: None (occurrence: None)
  Receive Date: 20040503
  Receipt Date: 20040415
  Transmission Date: 20050107
  Serious: Yes (Other)
  Sender: FDA-Public Use
  Company Number: 598AD04004/04052

PATIENT
  Age: 65 Year
  Sex: Female

DRUGS (4)
  1. DILTIAZEM [Suspect]
     Indication: HYPERTENSION
  2. DIPHENHYDRAMINE HCL [Suspect]
  3. HYDROCHLOROTHIAZIDE [Concomitant]
  4. FUROSEMIDE [Concomitant]

REACTIONS (6)
  - CARDIO-RESPIRATORY ARREST [None]
  - COMPLETED SUICIDE [None]
  - INTENTIONAL SELF-INJURY [None]
  - MULTIPLE DRUG OVERDOSE [None]
  - RESPIRATORY DEPRESSION [None]
  - SKIN LACERATION [None]
